FAERS Safety Report 7703962-X (Version None)
Quarter: 2011Q3

REPORT INFORMATION
  Report Type: 
  Country: None (occurrence: None)
  Receive Date: 20110823
  Receipt Date: 20110818
  Transmission Date: 20111222
  Serious: Yes (Life-Threatening)
  Sender: FDA-Public Use
  Company Number: FR-ROCHE-797895

PATIENT
  Age: 82 Year
  Sex: Female

DRUGS (4)
  1. ROCEPHIN [Suspect]
     Route: 065
  2. AMIKACIN [Suspect]
     Route: 065
  3. CALCIPARINE [Suspect]
     Route: 065
  4. PIPERACILLIN AND TAZOBACTAM [Suspect]
     Route: 065

REACTIONS (4)
  - LEUKOCYTOSIS [None]
  - RENAL FAILURE [None]
  - THROMBOCYTOPENIA [None]
  - CHOLESTASIS [None]
